FAERS Safety Report 9476190 (Version 1)
Quarter: 2013Q3

REPORT INFORMATION
  Report Type: Spontaneous
  Country: FR (occurrence: None)
  Receive Date: 20130821
  Receipt Date: 20130821
  Transmission Date: 20140515
  Serious: Yes (Other)
  Sender: FDA-Public Use
  Company Number: AUR-APL-2013-06752

PATIENT
  Age: 84 Year
  Sex: Male

DRUGS (5)
  1. GABAPENTIN [Suspect]
     Indication: RESTLESS LEGS SYNDROME
  2. PRAMIPEXOLE [Suspect]
     Indication: RESTLESS LEGS SYNDROME
     Dosage: 0.7 MG 2 IN 1 D
  3. CITALOPRAM (CITALOPRAM) [Suspect]
     Indication: DEPRESSION
  4. CODEINE [Suspect]
     Indication: RESTLESS LEGS SYNDROME
  5. BROMOCRIPTINE [Suspect]
     Indication: RESTLESS LEGS SYNDROME

REACTIONS (9)
  - No therapeutic response [None]
  - Impulse-control disorder [None]
  - Depressed mood [None]
  - Apathy [None]
  - Decreased interest [None]
  - Anhedonia [None]
  - Depression [None]
  - Restless legs syndrome [None]
  - Condition aggravated [None]
